FAERS Safety Report 10648334 (Version 2)
Quarter: 2015Q1

REPORT INFORMATION
  Report Type: Spontaneous
  Country: AU (occurrence: AU)
  Receive Date: 20141212
  Receipt Date: 20150304
  Transmission Date: 20150720
  Serious: No
  Sender: FDA-Public Use
  Company Number: AU-JNJFOC-20141111742

PATIENT
  Age: 68 Year
  Sex: Female

DRUGS (2)
  1. SIMPONI [Suspect]
     Active Substance: GOLIMUMAB
     Indication: PSORIATIC ARTHROPATHY
     Dosage: PRE-FILLED SYRINGE
     Route: 058
     Dates: start: 20101220
  2. SIMPONI [Suspect]
     Active Substance: GOLIMUMAB
     Indication: PSORIATIC ARTHROPATHY
     Dosage: AUTO INJECTOR
     Route: 058
     Dates: start: 201310

REACTIONS (4)
  - Accidental exposure to product [Unknown]
  - Accidental exposure to product [Unknown]
  - Inappropriate schedule of drug administration [Unknown]
  - Device malfunction [Unknown]

NARRATIVE: CASE EVENT DATE: 20141017
